FAERS Safety Report 7657381-5 (Version None)
Quarter: 2011Q3

REPORT INFORMATION
  Report Type: 
  Country: None (occurrence: None)
  Receive Date: 20110804
  Receipt Date: 20110801
  Transmission Date: 20111222
  Serious: Yes (Death, Disabling, Other)
  Sender: FDA-Public Use
  Company Number: PHFR2010GB05838

PATIENT
  Sex: Male

DRUGS (2)
  1. SUNITINIB MALATE [Suspect]
     Indication: RENAL CELL CARCINOMA
     Dosage: 50 MG/DAILY FOR 4 WEEKS FOLLOWED BY 2 WEEK BREAK TO COMPLETE 6 WEEK CYCLE
     Route: 048
     Dates: start: 20080701
  2. ZOMETA [Suspect]
     Indication: METASTASES TO BONE
     Dosage: 4 MG EVERY 4 WEEK
     Route: 042
     Dates: start: 20080401, end: 20090401

REACTIONS (11)
  - OSTEONECROSIS OF JAW [None]
  - TOOTH LOSS [None]
  - EXPOSED BONE IN JAW [None]
  - OSTEOMYELITIS [None]
  - NEOPLASM PROGRESSION [None]
  - FISTULA [None]
  - ABSCESS [None]
  - PAIN [None]
  - SOFT TISSUE INFECTION [None]
  - NEOPLASM MALIGNANT [None]
  - GINGIVAL INFECTION [None]
